FAERS Safety Report 7199202 (Version 3)
Quarter: 2015Q1

REPORT INFORMATION
  Report Type: Spontaneous
  Country: US (occurrence: US)
  Receive Date: 20091203
  Receipt Date: 20150223
  Transmission Date: 20150721
  Serious: Yes (Hospitalization, Other)
  Sender: FDA-Public Use
  Company Number: US-AMGEN-KDL322903

PATIENT
  Age: 47 Year
  Sex: Female
  Weight: 122.9 kg

DRUGS (19)
  1. PREDNISONE. [Concomitant]
     Active Substance: PREDNISONE
     Indication: RHEUMATOID ARTHRITIS
     Dosage: 5 MG, DAILY
  2. LORAZEPAM. [Concomitant]
     Active Substance: LORAZEPAM
     Indication: DEPRESSION
     Dosage: 1 MG, QHS
     Route: 048
  3. NASACORT ALLERGY 24HR [Concomitant]
     Active Substance: TRIAMCINOLONE ACETONIDE
     Indication: RHINITIS ALLERGIC
     Dosage: 55 MUG, QD
  4. NUVIGIL [Concomitant]
     Active Substance: ARMODAFINIL
     Indication: FATIGUE
     Dosage: 1 TAB DAILY
     Route: 048
  5. BIOTEE [Concomitant]
     Dosage: 1000 IU, DAILY
     Route: 048
  6. ADVIL PM                           /05810501/ [Concomitant]
     Dosage: 2 TAB , QHS PRN
  7. CYCLOBENZAPRINE HCL [Concomitant]
     Active Substance: CYCLOBENZAPRINE HYDROCHLORIDE
     Dosage: 10 MG, Q8H
  8. ENBREL [Suspect]
     Active Substance: ETANERCEPT
     Indication: RHEUMATOID ARTHRITIS
     Dosage: 50 MG, QWK
     Route: 058
     Dates: start: 20060601, end: 201412
  9. SYNTHROID [Concomitant]
     Active Substance: LEVOTHYROXINE SODIUM
     Indication: HYPOTHYROIDISM
     Dosage: 25 MUG, QD
     Route: 048
  10. BIOTEE [Concomitant]
     Dosage: 150 UNK, DAILY
     Route: 048
  11. ASTEPRO [Concomitant]
     Active Substance: AZELASTINE HYDROCHLORIDE
     Indication: RHINITIS ALLERGIC
     Dosage: UNK UNK, BID
  12. VITAMIN D3 [Concomitant]
     Active Substance: CHOLECALCIFEROL
     Indication: VITAMIN SUPPLEMENTATION
     Dosage: 500 UNK, DAILY
     Route: 048
  13. TRAMADOL HCL [Concomitant]
     Active Substance: TRAMADOL HYDROCHLORIDE
     Dosage: 50 MG, 1-2 TAB Q6H
     Route: 048
  14. ZYRTEC ALLERGY [Concomitant]
     Indication: RHINITIS ALLERGIC
     Dosage: 10 MG, DAILY
     Route: 048
  15. METHOTREXATE SODIUM. [Concomitant]
     Active Substance: METHOTREXATE SODIUM
     Indication: RHEUMATOID ARTHRITIS
     Dosage: 25 MG/ML, QWK
     Route: 058
  16. IODINE [Concomitant]
     Active Substance: IODINE
     Dosage: 12.5 UNK, DAILY
     Route: 048
  17. VIIBRYD [Concomitant]
     Active Substance: VILAZODONE HYDROCHLORIDE
     Indication: DEPRESSION
     Dosage: 20 MG, DAILY
     Route: 048
  18. INSULIN [Concomitant]
     Active Substance: INSULIN NOS
     Dosage: UNK
  19. FOLIC ACID. [Concomitant]
     Active Substance: FOLIC ACID
     Indication: RHEUMATOID ARTHRITIS
     Dosage: 1 MG, DAILY
     Route: 048

REACTIONS (10)
  - Gastric ulcer [Not Recovered/Not Resolved]
  - Hiatus hernia [Recovered/Resolved]
  - Gastrooesophageal reflux disease [Unknown]
  - Rheumatoid arthritis [Recovered/Resolved]
  - Abdominal distension [Recovered/Resolved]
  - Joint range of motion decreased [Unknown]
  - Infectious mononucleosis [Recovered/Resolved]
  - Obesity [Unknown]
  - Vomiting [Not Recovered/Not Resolved]
  - Laryngitis [Not Recovered/Not Resolved]

NARRATIVE: CASE EVENT DATE: 2008
